FAERS Safety Report 5976667-3 (Version None)
Quarter: 2008Q4

REPORT INFORMATION
  Report Type: 
  Country: None (occurrence: None)
  Receive Date: 20081201
  Receipt Date: 20081201
  Transmission Date: 20090506
  Serious: No
  Sender: FDA-Public Use
  Company Number: None

PATIENT
  Age: 51 Year
  Sex: Male
  Weight: 54.4316 kg

DRUGS (2)
  1. LEVITRA [Suspect]
     Dosage: 20 MG WHENEVER IN THE MOOD
     Dates: start: 20081001
  2. LEVITRA [Suspect]
     Dosage: 20 MG WHENEVER IN THE MOOD
     Dates: start: 20081101

REACTIONS (1)
  - CYANOPSIA [None]
